FAERS Safety Report 7118210-1 (Version None)
Quarter: 2010Q4

REPORT INFORMATION
  Report Type: 
  Country: None (occurrence: None)
  Receive Date: 20101123
  Receipt Date: 20101115
  Transmission Date: 20110411
  Serious: Yes (Hospitalization)
  Sender: FDA-Public Use
  Company Number: US-ASTRAZENECA-2010SE54316

PATIENT
  Sex: Male
  Weight: 136.1 kg

DRUGS (1)
  1. SYMBICORT [Suspect]
     Route: 055

REACTIONS (1)
  - CELLULITIS [None]
